FAERS Safety Report 4815716-2 (Version None)
Quarter: 2005Q4

REPORT INFORMATION
  Report Type: 
  Country: None (occurrence: None)
  Receive Date: 20051026
  Receipt Date: 20051007
  Transmission Date: 20060501
  Serious: Yes (Other)
  Sender: FDA-Public Use
  Company Number: USA0510109812

PATIENT
  Age: 42 Year
  Sex: Female

DRUGS (6)
  1. ZYPREXA [Suspect]
     Indication: BIPOLAR DISORDER
     Dosage: 15 MG
     Dates: start: 20031001
  2. CLONAZEPAM [Concomitant]
  3. DEXADRIN (DEXAMETHASONE) [Concomitant]
  4. HYDROXYZINE [Concomitant]
  5. SYNTHROID [Concomitant]
  6. ZOLOFT [Concomitant]

REACTIONS (6)
  - BLOOD CHOLESTEROL INCREASED [None]
  - BLOOD PRESSURE INCREASED [None]
  - CONTUSION [None]
  - INCREASED TENDENCY TO BRUISE [None]
  - WEIGHT INCREASED [None]
  - WEIGHT LOSS POOR [None]
